FAERS Safety Report 5243760-2 (Version None)
Quarter: 2007Q1

REPORT INFORMATION
  Report Type: 
  Country: None (occurrence: None)
  Receive Date: 20070222
  Receipt Date: 20070208
  Transmission Date: 20070707
  Serious: Yes (Other)
  Sender: FDA-Public Use
  Company Number: PHNU2007DE00849

PATIENT
  Sex: Male

DRUGS (5)
  1. DIOVAN [Suspect]
     Indication: HYPERTENSION
     Dosage: 0.5 DF, QD
     Route: 048
     Dates: start: 20030101, end: 20070207
  2. DIOVAN [Suspect]
     Dosage: 0.5 DF, BID
     Route: 048
     Dates: start: 20070208
  3. VOLTAREN [Suspect]
     Dosage: UNK, PRN
  4. ALLOPURINOL SODIUM [Suspect]
     Indication: GOUT
     Dates: start: 20030101
  5. METOPROLOL SUCCINATE [Concomitant]

REACTIONS (4)
  - BLOOD PRESSURE INCREASED [None]
  - DRUG INTERACTION [None]
  - NIGHTMARE [None]
  - TACHYARRHYTHMIA [None]
